FAERS Safety Report 17050910 (Version 3)
Quarter: 2020Q1

REPORT INFORMATION
  Report Type: Spontaneous
  Country: AU (occurrence: AU)
  Receive Date: 20191120
  Receipt Date: 20200129
  Transmission Date: 20200409
  Serious: Yes (Hospitalization, Other)
  Sender: FDA-Public Use
  Company Number: AU-ROCHE-2477783

PATIENT
  Sex: Female

DRUGS (1)
  1. XOLAIR [Suspect]
     Active Substance: OMALIZUMAB
     Indication: CHRONIC SPONTANEOUS URTICARIA
     Route: 058
     Dates: start: 20190718, end: 20190913

REACTIONS (4)
  - Cardiac infection [Unknown]
  - Cardiac ventricular thrombosis [Unknown]
  - Thrombosis [Unknown]
  - Antiphospholipid syndrome [Unknown]
